FAERS Safety Report 9741377 (Version 1)
Quarter: 2013Q4

REPORT INFORMATION
  Report Type: Spontaneous
  Country: FR (occurrence: FR)
  Receive Date: 20131209
  Receipt Date: 20131209
  Transmission Date: 20140711
  Serious: Yes (Hospitalization)
  Sender: FDA-Public Use
  Company Number: FR-ABBVIE-13P-056-1177212-00

PATIENT
  Age: 43 Year
  Sex: Male

DRUGS (7)
  1. ZECLAR [Suspect]
     Indication: ATYPICAL MYCOBACTERIAL INFECTION
     Dosage: DAILY: 1000 MG (250MG: 2 DOSAGE FORM MORNING AND EVENING)
     Route: 048
     Dates: start: 20130607, end: 20130805
  2. ANSATIPINE [Suspect]
     Indication: ATYPICAL MYCOBACTERIAL INFECTION
     Route: 048
     Dates: start: 20130607, end: 20130805
  3. DEXAMBUTOL [Suspect]
     Indication: ATYPICAL MYCOBACTERIAL INFECTION
     Route: 048
     Dates: start: 20130607, end: 20130805
  4. FORADIL [Concomitant]
     Indication: PRODUCT USED FOR UNKNOWN INDICATION
     Route: 048
  5. FLIXOTIDE [Concomitant]
     Indication: PRODUCT USED FOR UNKNOWN INDICATION
     Dosage: 250/50: 2PUFFSX3/DAY
     Route: 048
  6. CORTANCYL [Concomitant]
     Indication: PRODUCT USED FOR UNKNOWN INDICATION
     Route: 048
  7. ZITHROMAX [Concomitant]
     Indication: PRODUCT USED FOR UNKNOWN INDICATION
     Dosage: 1DFX3/WEEK
     Route: 048

REACTIONS (4)
  - Hepatocellular injury [Recovered/Resolved]
  - Cholestasis [Recovered/Resolved]
  - Rash maculo-papular [Recovered/Resolved]
  - Pyrexia [Recovered/Resolved]
